FAERS Safety Report 4554754-4 (Version None)
Quarter: 2005Q1

REPORT INFORMATION
  Report Type: 
  Country: None (occurrence: None)
  Receive Date: 20050118
  Receipt Date: 20031107
  Transmission Date: 20050727
  Serious: Yes (Other)
  Sender: FDA-Public Use
  Company Number: BE-GLAXOSMITHKLINE-B0314640A

PATIENT
  Age: 40 Year
  Sex: Female

DRUGS (4)
  1. ZIAGEN [Suspect]
     Indication: HIV INFECTION
     Dosage: 300MG TWICE PER DAY
     Route: 048
     Dates: start: 20031014, end: 20031028
  2. ZINNAT [Suspect]
     Indication: PYREXIA
     Dosage: 500MG TWICE PER DAY
     Route: 048
     Dates: start: 20031028, end: 20031030
  3. EPIVIR [Suspect]
     Indication: HIV INFECTION
     Dosage: 150MG TWICE PER DAY
     Route: 048
     Dates: start: 20031014, end: 20031028
  4. STOCRIN [Suspect]
     Indication: HIV INFECTION
     Dosage: 600MG PER DAY
     Route: 048
     Dates: start: 20031014, end: 20031028

REACTIONS (4)
  - ACUTE GENERALISED EXANTHEMATOUS PUSTULOSIS [None]
  - COUGH [None]
  - PYREXIA [None]
  - RASH PUSTULAR [None]
